FAERS Safety Report 6719825-2 (Version None)
Quarter: 2010Q2

REPORT INFORMATION
  Report Type: 
  Country: None (occurrence: None)
  Receive Date: 20100511
  Receipt Date: 20100429
  Transmission Date: 20101027
  Serious: Yes (Disabling)
  Sender: FDA-Public Use
  Company Number: PHHY2010FI01055

PATIENT
  Sex: Female

DRUGS (1)
  1. ZOMETA [Suspect]
     Indication: MULTIPLE MYELOMA
     Route: 042

REACTIONS (3)
  - DENTAL CLEANING [None]
  - JAW DISORDER [None]
  - OSTEONECROSIS OF JAW [None]
